FAERS Safety Report 23688751 (Version 4)
Quarter: 2025Q2

REPORT INFORMATION
  Report Type: Report from Study
  Country: JP (occurrence: JP)
  Receive Date: 20240329
  Receipt Date: 20250520
  Transmission Date: 20250716
  Serious: Yes (Death)
  Sender: EISAI
  Company Number: JP-Eisai-202315833_LEQ_P_1

PATIENT
  Age: 81 Year
  Sex: Male
  Weight: 60 kg

DRUGS (15)
  1. LEQEMBI [Suspect]
     Active Substance: LECANEMAB-IRMB
     Indication: Dementia Alzheimer^s type
     Route: 041
     Dates: start: 20240221, end: 20240306
  2. LEMBOREXANT [Concomitant]
     Active Substance: LEMBOREXANT
     Route: 048
  3. CAMOSTAT MESYLATE [Concomitant]
     Active Substance: CAMOSTAT MESYLATE
     Route: 048
  4. MAGNESIUM OXIDE [Concomitant]
     Active Substance: MAGNESIUM OXIDE
     Route: 048
  5. PANCRELIPASE [Concomitant]
     Active Substance: PANCRELIPASE
     Route: 048
  6. CANDESARTAN [Concomitant]
     Active Substance: CANDESARTAN
     Route: 048
  7. TADALAFIL [Concomitant]
     Active Substance: TADALAFIL
     Route: 048
  8. ACETAMINOPHEN\TRAMADOL HYDROCHLORIDE [Concomitant]
     Active Substance: ACETAMINOPHEN\TRAMADOL HYDROCHLORIDE
     Route: 048
  9. PREGABALIN [Concomitant]
     Active Substance: PREGABALIN
     Route: 048
  10. FEXOFENADINE HYDROCHLORIDE [Concomitant]
     Active Substance: FEXOFENADINE HYDROCHLORIDE
     Route: 048
  11. MIYA-BM [Concomitant]
     Active Substance: CLOSTRIDIUM BUTYRICUM SPORES STRAIN M-55
     Route: 048
  12. AMLODIPINE [Concomitant]
     Active Substance: AMLODIPINE BESYLATE
     Route: 048
  13. HERBALS [Concomitant]
     Active Substance: HERBALS
     Route: 048
  14. POLAPREZINC [Concomitant]
     Active Substance: POLAPREZINC
     Route: 048
  15. LINAGLIPTIN [Concomitant]
     Active Substance: LINAGLIPTIN
     Route: 048

REACTIONS (1)
  - Fall [Fatal]

NARRATIVE: CASE EVENT DATE: 20240325
